FAERS Safety Report 19894699 (Version 3)
Quarter: 2024Q2

REPORT INFORMATION
  Report Type: Other
  Country: CA (occurrence: CA)
  Receive Date: 20210929
  Receipt Date: 20240619
  Transmission Date: 20240716
  Serious: Yes (Death, Other)
  Sender: FDA-Public Use
  Company Number: CA-APOTEX-2021AP043233

PATIENT
  Age: 54 Year
  Sex: Male

DRUGS (48)
  1. LAMIVUDINE [Interacting]
     Active Substance: LAMIVUDINE
     Indication: HIV infection
     Dosage: UNK
     Route: 065
  2. ATAZANAVIR [Interacting]
     Active Substance: ATAZANAVIR
     Indication: HIV infection
     Route: 048
  3. ATAZANAVIR [Interacting]
     Active Substance: ATAZANAVIR
     Dosage: UNK
     Route: 065
  4. CLONAZEPAM [Interacting]
     Active Substance: CLONAZEPAM
     Indication: Bipolar disorder
     Dosage: UNK
     Route: 048
  5. CLONAZEPAM [Interacting]
     Active Substance: CLONAZEPAM
     Dosage: UNK
     Route: 065
  6. ZOPICLONE [Interacting]
     Active Substance: ZOPICLONE
     Indication: Bipolar disorder
     Dosage: 10 MILLIGRAM
     Route: 048
  7. ZOPICLONE [Interacting]
     Active Substance: ZOPICLONE
     Dosage: UNK
     Route: 065
  8. VALPROIC ACID [Interacting]
     Active Substance: VALPROIC ACID
     Indication: Bipolar disorder
     Dosage: UNK
     Route: 065
  9. VALPROIC ACID [Interacting]
     Active Substance: VALPROIC ACID
     Dosage: UNK
     Route: 048
  10. QUETIAPINE [Interacting]
     Active Substance: QUETIAPINE
     Indication: Bipolar disorder
     Dosage: UNK
     Route: 048
  11. QUETIAPINE [Interacting]
     Active Substance: QUETIAPINE
     Dosage: UNK
     Route: 065
  12. QUETIAPINE [Interacting]
     Active Substance: QUETIAPINE
     Dosage: 2 DOSAGE FORM, QD
     Route: 048
  13. QUETIAPINE [Interacting]
     Active Substance: QUETIAPINE
     Dosage: 400 MILLIGRAM, Q.O.WK.
     Route: 048
  14. QUETIAPINE [Interacting]
     Active Substance: QUETIAPINE
     Dosage: 400 MILLIGRAM, QID
     Route: 048
  15. SERTRALINE [Interacting]
     Active Substance: SERTRALINE HYDROCHLORIDE
     Indication: Bipolar disorder
     Dosage: UNK
     Route: 048
  16. SERTRALINE [Interacting]
     Active Substance: SERTRALINE HYDROCHLORIDE
     Dosage: 400 MILLIGRAM, BID
     Route: 048
  17. BUPROPION HYDROCHLORIDE [Interacting]
     Active Substance: BUPROPION HYDROCHLORIDE
     Indication: Bipolar disorder
     Dosage: UNK
     Route: 065
  18. EFAVIRENZ [Interacting]
     Active Substance: EFAVIRENZ
     Indication: HIV infection
     Dosage: UNK
     Route: 048
  19. EFAVIRENZ [Interacting]
     Active Substance: EFAVIRENZ
     Dosage: UNK
     Route: 065
  20. EFAVIRENZ [Interacting]
     Active Substance: EFAVIRENZ
     Dosage: 400 MILLIGRAM, BID
     Route: 048
  21. EFAVIRENZ [Interacting]
     Active Substance: EFAVIRENZ
     Dosage: 1 DOSAGE FORM, BID
     Route: 048
  22. EFAVIRENZ [Interacting]
     Active Substance: EFAVIRENZ
     Dosage: 800 MILLIGRAM, QD
     Route: 065
  23. EFAVIRENZ [Interacting]
     Active Substance: EFAVIRENZ
     Dosage: 400 MILLIGRAM, QD
     Route: 065
  24. EFAVIRENZ [Interacting]
     Active Substance: EFAVIRENZ
     Dosage: 400 MILLIGRAM
     Route: 065
  25. EFAVIRENZ [Interacting]
     Active Substance: EFAVIRENZ
     Dosage: 400 MILLIGRAM, BID
     Route: 065
  26. KALETRA [Interacting]
     Active Substance: LOPINAVIR\RITONAVIR
     Indication: HIV infection
     Dosage: UNK
     Route: 065
  27. KALETRA [Interacting]
     Active Substance: LOPINAVIR\RITONAVIR
     Dosage: UNK
     Route: 048
  28. RALTEGRAVIR [Interacting]
     Active Substance: RALTEGRAVIR
     Indication: HIV infection
     Dosage: 400 MICROGRAM, BID
     Route: 048
  29. RALTEGRAVIR [Interacting]
     Active Substance: RALTEGRAVIR
     Dosage: UNK
     Route: 048
  30. RALTEGRAVIR [Interacting]
     Active Substance: RALTEGRAVIR
     Dosage: 400 MILLIGRAM, BID
     Route: 048
  31. RALTEGRAVIR [Interacting]
     Active Substance: RALTEGRAVIR
     Dosage: 400 MILLILITER, QD
     Route: 048
  32. RALTEGRAVIR [Interacting]
     Active Substance: RALTEGRAVIR
     Dosage: 2 DOSAGE FORM, QD
     Route: 048
  33. RALTEGRAVIR [Interacting]
     Active Substance: RALTEGRAVIR
     Dosage: 1 DOSAGE FORM, BID
     Route: 048
  34. RALTEGRAVIR [Interacting]
     Active Substance: RALTEGRAVIR
     Dosage: 2 MILLIGRAM, QD
     Route: 065
  35. RALTEGRAVIR [Interacting]
     Active Substance: RALTEGRAVIR
     Dosage: UNK
     Route: 065
  36. RALTEGRAVIR [Interacting]
     Active Substance: RALTEGRAVIR
     Dosage: 1 DOSAGE FORM
     Route: 048
  37. SUSTIVA [Interacting]
     Active Substance: EFAVIRENZ
     Indication: Product used for unknown indication
     Dosage: 400 MICROGRAM, BID
     Route: 048
  38. SUSTIVA [Interacting]
     Active Substance: EFAVIRENZ
     Dosage: 400 MILLIGRAM, BID
     Route: 048
  39. BUPROPION HYDROBROMIDE [Interacting]
     Active Substance: BUPROPION HYDROBROMIDE
     Indication: Bipolar disorder
     Dosage: UNK
     Route: 048
  40. BUPROPION HYDROBROMIDE [Interacting]
     Active Substance: BUPROPION HYDROBROMIDE
     Dosage: UNK
     Route: 065
  41. ATAZANAVIR [Interacting]
     Active Substance: ATAZANAVIR
     Indication: HIV infection
     Dosage: UNK
     Route: 005
  42. LAMIVUDINE [Interacting]
     Active Substance: LAMIVUDINE
     Indication: HIV infection
     Dosage: UNK
     Route: 005
  43. LOPINAVIR\RITONAVIR [Interacting]
     Active Substance: LOPINAVIR\RITONAVIR
     Indication: Product used for unknown indication
     Dosage: UNK
     Route: 065
  44. SERTRALINE [Interacting]
     Active Substance: SERTRALINE HYDROCHLORIDE
     Indication: Bipolar disorder
     Dosage: UNK
     Route: 048
  45. SERTRALINE [Interacting]
     Active Substance: SERTRALINE HYDROCHLORIDE
     Dosage: 400 MILLIGRAM, BID
     Route: 048
  46. SERTRALINE [Interacting]
     Active Substance: SERTRALINE HYDROCHLORIDE
     Dosage: UNK
     Route: 065
  47. ENFUVIRTIDE [Concomitant]
     Active Substance: ENFUVIRTIDE
     Indication: HIV infection
     Dosage: UNK
     Route: 048
  48. ENFUVIRTIDE [Concomitant]
     Active Substance: ENFUVIRTIDE
     Indication: Product used for unknown indication
     Dosage: UNK
     Route: 065

REACTIONS (5)
  - Depression [Fatal]
  - Drug interaction [Fatal]
  - Loss of personal independence in daily activities [Fatal]
  - Incorrect route of product administration [Fatal]
  - Product use in unapproved indication [Fatal]
